FAERS Safety Report 9052585 (Version 1)
Quarter: 2013Q1

REPORT INFORMATION
  Report Type: Spontaneous
  Country: US (occurrence: US)
  Receive Date: 20130207
  Receipt Date: 20130207
  Transmission Date: 20140127
  Serious: No
  Sender: FDA-Public Use
  Company Number: US-PFIZER INC-2013046968

PATIENT
  Age: 48 Year
  Sex: Female

DRUGS (7)
  1. MORPHINE SULFATE [Suspect]
     Dosage: UNK
     Route: 042
  2. OXYCODONE HYDROCHLORIDE [Suspect]
     Dosage: UNK
  3. DARVOCET [Suspect]
     Dosage: UNK
  4. BACTRIM [Suspect]
     Dosage: UNK
  5. DILAUDID [Suspect]
     Dosage: UNK
  6. PERCOCET [Suspect]
     Dosage: UNK
  7. SAVELLA [Suspect]
     Dosage: UNK

REACTIONS (1)
  - Drug hypersensitivity [Unknown]
